FAERS Safety Report 8479008-5 (Version None)
Quarter: 2012Q2

REPORT INFORMATION
  Report Type: 
  Country: None (occurrence: None)
  Receive Date: 20120629
  Receipt Date: 20120620
  Transmission Date: 20120825
  Serious: Yes (Hospitalization, Disabling, Other)
  Sender: FDA-Public Use
  Company Number: US-MERCK-1203USA03316

PATIENT
  Age: 76 Year
  Sex: Female

DRUGS (9)
  1. FOSAMAX [Suspect]
     Route: 065
  2. BONIVA [Concomitant]
     Indication: OSTEOPENIA
     Route: 048
     Dates: start: 20100101, end: 20110101
  3. ALENDRONATE SODIUM [Suspect]
     Indication: OSTEOPOROSIS
     Route: 065
  4. ALENDRONATE SODIUM [Suspect]
     Indication: OSTEOPENIA
     Route: 065
  5. FOSAMAX [Suspect]
     Indication: OSTEOPOROSIS
     Route: 048
     Dates: start: 20000101, end: 20080101
  6. BONIVA [Concomitant]
     Indication: OSTEOPOROSIS
     Route: 048
     Dates: start: 20100101, end: 20110101
  7. FOSAMAX [Suspect]
     Route: 065
  8. PREMARIN [Concomitant]
     Indication: HORMONE REPLACEMENT THERAPY
     Route: 065
     Dates: start: 19980101, end: 20100101
  9. FOSAMAX [Suspect]
     Indication: OSTEOPENIA
     Route: 048
     Dates: start: 20000101, end: 20080101

REACTIONS (53)
  - FEMUR FRACTURE [None]
  - PAIN IN EXTREMITY [None]
  - SUPRAVENTRICULAR EXTRASYSTOLES [None]
  - HYPOKALAEMIA [None]
  - DEAFNESS [None]
  - LOW TURNOVER OSTEOPATHY [None]
  - EMPHYSEMA [None]
  - DECREASED APPETITE [None]
  - NAUSEA [None]
  - HYPERTENSION [None]
  - STRESS FRACTURE [None]
  - BLADDER DYSFUNCTION [None]
  - COUGH [None]
  - DIARRHOEA [None]
  - NEUROPATHY PERIPHERAL [None]
  - TENDON DISORDER [None]
  - COMPLEX REGIONAL PAIN SYNDROME [None]
  - ANAL FISTULA [None]
  - MUSCULOSKELETAL CHEST PAIN [None]
  - UTERINE DISORDER [None]
  - ARTHRALGIA [None]
  - PAIN [None]
  - CONSTIPATION [None]
  - PNEUMOTHORAX [None]
  - SKIN LESION [None]
  - GASTROOESOPHAGEAL REFLUX DISEASE [None]
  - ATELECTASIS [None]
  - ANXIETY [None]
  - OEDEMA PERIPHERAL [None]
  - MASS [None]
  - ULCER [None]
  - TOOTH EXTRACTION [None]
  - IRRITABLE BOWEL SYNDROME [None]
  - INSOMNIA [None]
  - FRACTURE DELAYED UNION [None]
  - DYSPNOEA [None]
  - OSTEOPOROSIS [None]
  - COMPRESSION FRACTURE [None]
  - ABDOMINAL PAIN [None]
  - CHEST PAIN [None]
  - CYSTOCELE [None]
  - UPPER RESPIRATORY TRACT INFECTION [None]
  - DYSPHAGIA [None]
  - DIVERTICULUM [None]
  - VITAMIN D DEFICIENCY [None]
  - RADICULOPATHY [None]
  - BACK PAIN [None]
  - SPINAL COMPRESSION FRACTURE [None]
  - BRONCHITIS [None]
  - DEPRESSION [None]
  - INTERVERTEBRAL DISC DEGENERATION [None]
  - STRESS URINARY INCONTINENCE [None]
  - LEUKOCYTOSIS [None]
